FAERS Safety Report 4572730-2 (Version None)
Quarter: 2005Q1

REPORT INFORMATION
  Report Type: 
  Country: None (occurrence: None)
  Receive Date: 20050118
  Receipt Date: 20040630
  Transmission Date: 20050727
  Serious: Yes (Other)
  Sender: FDA-Public Use
  Company Number: HQWYE880906JUL04

PATIENT
  Age: 53 Year
  Sex: Female

DRUGS (3)
  1. PREMPRO (CONJUGATED ESTROGENS/MEDROXYPROGESTERONE, TABLET, UNSPEC) [Suspect]
     Indication: HORMONE REPLACEMENT THERAPY
     Dosage: ORAL
     Route: 048
     Dates: start: 19970214, end: 19990825
  2. MEDROXYPROGESTERONE ACETATE [Suspect]
     Indication: HORMONE REPLACEMENT THERAPY
     Dosage: ORAL
     Route: 048
     Dates: start: 19951016, end: 19960917
  3. PREMARIN [Suspect]
     Indication: HORMONE REPLACEMENT THERAPY
     Dosage: ORAL
     Route: 048
     Dates: start: 19950724, end: 19970301

REACTIONS (1)
  - BREAST CANCER FEMALE [None]
